FAERS Safety Report 24703074 (Version 1)
Quarter: 2024Q4

REPORT INFORMATION
  Report Type: Spontaneous
  Country: CN (occurrence: CN)
  Receive Date: 20241205
  Receipt Date: 20241205
  Transmission Date: 20250115
  Serious: Yes (Hospitalization, Other)
  Sender: PFIZER
  Company Number: CN-PFIZER INC-PV202400156502

PATIENT
  Age: 47 Year
  Sex: Male
  Weight: 88 kg

DRUGS (2)
  1. CYTARABINE [Suspect]
     Active Substance: CYTARABINE
     Indication: Acute myeloid leukaemia
     Dosage: 4.000 G, 1X/DAY
     Route: 041
     Dates: start: 20241027, end: 20241029
  2. SODIUM CHLORIDE [Concomitant]
     Active Substance: SODIUM CHLORIDE
     Indication: Therapeutic procedure
     Dosage: 500.000 ML, ONCE EVERY 11 DAYS
     Route: 041
     Dates: start: 20241027, end: 20241029

REACTIONS (2)
  - Vomiting [Recovering/Resolving]
  - Hiccups [Unknown]

NARRATIVE: CASE EVENT DATE: 20241029
